FAERS Safety Report 20976754 (Version 1)
Quarter: 2022Q2

REPORT INFORMATION
  Report Type: Spontaneous
  Country: US (occurrence: US)
  Receive Date: 20220617
  Receipt Date: 20220617
  Transmission Date: 20220721
  Serious: Yes (Other)
  Sender: FDA-Public Use
  Company Number: US-BAXTER-2022BAX012506

PATIENT

DRUGS (1)
  1. DEXTROSE\DOBUTAMINE HYDROCHLORIDE [Suspect]
     Active Substance: DEXTROSE\DOBUTAMINE HYDROCHLORIDE
     Dosage: 500MG/250ML
     Route: 065

REACTIONS (3)
  - Bradycardia [Recovering/Resolving]
  - Incorrect drug administration rate [Unknown]
  - Device occlusion [Unknown]

NARRATIVE: CASE EVENT DATE: 20220525
